FAERS Safety Report 7698997-X (Version None)
Quarter: 2011Q3

REPORT INFORMATION
  Report Type: 
  Country: None (occurrence: None)
  Receive Date: 20110819
  Receipt Date: 20101116
  Transmission Date: 20111222
  Serious: Yes (Life-Threatening, Other)
  Sender: FDA-Public Use
  Company Number: US-AMGEN AB-QUU433742

PATIENT

DRUGS (2)
  1. IMMUNOGLOBULIN HUMAN ANTI-RH [Concomitant]
     Dosage: UNK UNK, UNK
     Dates: start: 20080201
  2. NPLATE [Suspect]
     Indication: IDIOPATHIC THROMBOCYTOPENIC PURPURA
     Dosage: 5 A?G/KG, QWK
     Dates: start: 20080916, end: 20100810

REACTIONS (4)
  - THROMBOCYTOPENIA [None]
  - BONE MARROW DISORDER [None]
  - ANAEMIA HAEMOLYTIC AUTOIMMUNE [None]
  - ANAEMIA MACROCYTIC [None]
